FAERS Safety Report 4543917-X (Version None)
Quarter: 2004Q4

REPORT INFORMATION
  Report Type: 
  Country: None (occurrence: None)
  Receive Date: 20041229
  Receipt Date: 20041229
  Transmission Date: 20050328
  Serious: Yes (Hospitalization)
  Sender: FDA-Public Use
  Company Number: None

PATIENT
  Age: 46 Year
  Sex: Male

DRUGS (1)
  1. SERTRALINE 100 MG [Suspect]
     Dosage: PO DAILY
     Route: 048

REACTIONS (8)
  - AGGRESSION [None]
  - COMA [None]
  - ENCEPHALOPATHY [None]
  - FALL [None]
  - GRAND MAL CONVULSION [None]
  - HYPONATRAEMIA [None]
  - PNEUMONIA [None]
  - POLYDIPSIA [None]
